FAERS Safety Report 18916499 (Version 1)
Quarter: 2021Q1

REPORT INFORMATION
  Report Type: Spontaneous
  Country: US (occurrence: US)
  Receive Date: 20210219
  Receipt Date: 20210219
  Transmission Date: 20210420
  Serious: Yes (Hospitalization)
  Sender: FDA-Public Use
  Company Number: US-MYLANLABS-2021M1009879

PATIENT
  Age: 39 Year
  Sex: Female
  Weight: 79.38 kg

DRUGS (2)
  1. EPINEPHRINE. [Suspect]
     Active Substance: EPINEPHRINE
     Indication: ANAPHYLACTIC REACTION
     Dosage: UNK
     Route: 065
     Dates: start: 20210209
  2. PFIZER?BIONTECH COVID?19 VACCINE [Suspect]
     Active Substance: TOZINAMERAN

REACTIONS (7)
  - Fine motor skill dysfunction [Unknown]
  - Cerebrovascular accident [Unknown]
  - Communication disorder [Recovered/Resolved]
  - Movement disorder [Unknown]
  - Dysarthria [Recovered/Resolved]
  - Dysphemia [Recovering/Resolving]
  - Dysphagia [Unknown]

NARRATIVE: CASE EVENT DATE: 20210209
